FAERS Safety Report 14228059 (Version 3)
Quarter: 2018Q4

REPORT INFORMATION
  Report Type: Spontaneous
  Country: US (occurrence: US)
  Receive Date: 20171127
  Receipt Date: 20181214
  Transmission Date: 20190204
  Serious: Yes (Other)
  Sender: FDA-Public Use
  Company Number: US-OTSUKA-2017_025404

PATIENT
  Age: 21 Year
  Sex: Male

DRUGS (9)
  1. ABILIFY [Suspect]
     Active Substance: ARIPIPRAZOLE
     Indication: MAJOR DEPRESSION
  2. ABILIFY [Suspect]
     Active Substance: ARIPIPRAZOLE
     Indication: SOCIAL ANXIETY DISORDER
  3. ABILIFY [Suspect]
     Active Substance: ARIPIPRAZOLE
     Indication: PSYCHOTIC DISORDER
  4. CLOTRIMAZOLE. [Concomitant]
     Active Substance: CLOTRIMAZOLE
     Indication: PRODUCT USED FOR UNKNOWN INDICATION
     Dosage: UNK, BID (1% UP TO FOUR WEEKS)
     Route: 065
  5. FLUOXETINE [Concomitant]
     Active Substance: FLUOXETINE HYDROCHLORIDE
     Indication: ANXIETY
     Dosage: 20 MG, QD
     Route: 048
  6. ABILIFY [Suspect]
     Active Substance: ARIPIPRAZOLE
     Indication: ANXIETY
  7. ABILIFY [Suspect]
     Active Substance: ARIPIPRAZOLE
     Indication: BIPOLAR DISORDER
     Dosage: 2-20 MG, QD
     Route: 065
     Dates: start: 20130119, end: 201607
  8. ARIPIPRAZOLE. [Concomitant]
     Active Substance: ARIPIPRAZOLE
     Indication: PRODUCT USED FOR UNKNOWN INDICATION
     Dosage: UNK
     Route: 065
     Dates: start: 20160208, end: 20160309
  9. VYVANSE [Concomitant]
     Active Substance: LISDEXAMFETAMINE DIMESYLATE
     Indication: PRODUCT USED FOR UNKNOWN INDICATION
     Dosage: 20 MG, QD
     Route: 048

REACTIONS (20)
  - Compulsive sexual behaviour [Unknown]
  - Hypersexuality [Unknown]
  - Gambling disorder [Recovered/Resolved]
  - Alcohol abuse [Unknown]
  - Illness anxiety disorder [Unknown]
  - Obsessive-compulsive disorder [Unknown]
  - Pain [Unknown]
  - Economic problem [Unknown]
  - Euphoric mood [Unknown]
  - Tachyphrenia [Unknown]
  - Compulsive shopping [Unknown]
  - Eating disorder [Unknown]
  - Condition aggravated [Recovered/Resolved]
  - Product use in unapproved indication [Unknown]
  - Injury [Unknown]
  - Hallucination, auditory [Unknown]
  - Suicide attempt [Unknown]
  - Suicidal ideation [Unknown]
  - Inappropriate affect [Unknown]
  - Anxiety [Unknown]

NARRATIVE: CASE EVENT DATE: 201303
